FAERS Safety Report 7604502-6 (Version None)
Quarter: 2011Q3

REPORT INFORMATION
  Report Type: 
  Country: None (occurrence: None)
  Receive Date: 20110712
  Receipt Date: 20110702
  Transmission Date: 20111222
  Serious: Yes (Other)
  Sender: FDA-Public Use
  Company Number: US-JNJFOC-20110701621

PATIENT
  Age: 73 Year
  Sex: Female

DRUGS (2)
  1. EXTRA STRENGTH TYLENOL [Suspect]
     Indication: ARTHRITIS
     Dosage: ^6500 MG^. 3 TIMES OER DAY
     Route: 065
     Dates: start: 20090101
  2. EXTRA STRENGTH TYLENOL [Suspect]
     Route: 065

REACTIONS (3)
  - COLON CANCER [None]
  - PRODUCT QUALITY ISSUE [None]
  - COLONIC POLYP [None]
